FAERS Safety Report 5416545-1 (Version None)
Quarter: 2007Q3

REPORT INFORMATION
  Report Type: 
  Country: None (occurrence: None)
  Receive Date: 20070814
  Receipt Date: 20070814
  Transmission Date: 20080115
  Serious: Yes (Other)
  Sender: FDA-Public Use
  Company Number: None

PATIENT
  Sex: Female

DRUGS (1)
  1. GENERIC DURAGESIC 50MCGML/HR. [Suspect]
     Indication: PAIN
     Dosage: 50MCGML/HR 3 DAYS SKIN
     Route: 062

REACTIONS (1)
  - BREAKTHROUGH PAIN [None]
